FAERS Safety Report 23744912 (Version 1)
Quarter: 2024Q2

REPORT INFORMATION
  Report Type: Spontaneous
  Country: US (occurrence: US)
  Receive Date: 20240415
  Receipt Date: 20240415
  Transmission Date: 20240716
  Serious: Yes (Other)
  Sender: FDA-Public Use
  Company Number: US-PRINSTON PHARMACEUTICAL INC.-2024PRN00130

PATIENT
  Age: 67 Year
  Sex: Male
  Weight: 89.342 kg

DRUGS (10)
  1. RISPERIDONE [Suspect]
     Active Substance: RISPERIDONE
     Indication: Anxiety
     Dosage: 0.5 MG, 1X/DAY
     Route: 048
     Dates: start: 20240309
  2. RISPERIDONE [Suspect]
     Active Substance: RISPERIDONE
     Indication: Depression
     Dosage: 0.5 MG (WHOLE PILL) AT 1:30 A.M. FOR 12 HOURS
     Route: 048
     Dates: start: 202403, end: 202403
  3. RISPERIDONE [Suspect]
     Active Substance: RISPERIDONE
     Dosage: 0.375 MG
     Route: 048
     Dates: start: 202403, end: 20240319
  4. CLONIDINE [Concomitant]
     Active Substance: CLONIDINE
  5. VITAMINS [Concomitant]
     Active Substance: VITAMINS
  6. CALCIUM [Concomitant]
     Active Substance: CALCIUM
  7. TAMSULOSIN [Concomitant]
     Active Substance: TAMSULOSIN
  8. OXYCODONE [Concomitant]
     Active Substance: OXYCODONE\OXYCODONE HYDROCHLORIDE
  9. BUSPIRONE HCL [Concomitant]
     Active Substance: BUSPIRONE HYDROCHLORIDE
  10. HYDROXYZINE HYDROCHLORIDE [Concomitant]
     Active Substance: HYDROXYZINE HYDROCHLORIDE

REACTIONS (9)
  - Hypertension [Recovered/Resolved]
  - Mental impairment [Recovered/Resolved]
  - Drug dependence [Recovered/Resolved]
  - Negative thoughts [Recovered/Resolved]
  - Tremor [Recovered/Resolved]
  - Feeling abnormal [Recovered/Resolved]
  - Withdrawal syndrome [Recovered/Resolved]
  - Unevaluable event [Recovered/Resolved]
  - Inappropriate schedule of product discontinuation [Recovered/Resolved]

NARRATIVE: CASE EVENT DATE: 20240301
